FAERS Safety Report 13577363 (Version 2)
Quarter: 2017Q3

REPORT INFORMATION
  Report Type: Report from Study
  Country: US (occurrence: LB)
  Receive Date: 20170524
  Receipt Date: 20170825
  Transmission Date: 20171127
  Serious: Yes (Hospitalization, Other)
  Sender: FDA-Public Use
  Company Number: US-009507513-1705USA009197

PATIENT
  Age: 45 Year
  Sex: Female

DRUGS (1)
  1. KEYTRUDA [Suspect]
     Active Substance: PEMBROLIZUMAB
     Indication: OVARIAN CANCER
     Dosage: UNK
     Route: 041
     Dates: start: 201612, end: 201704

REACTIONS (5)
  - Malignant neoplasm progression [Unknown]
  - Gastrointestinal infection [Unknown]
  - Diverticulum intestinal [Not Recovered/Not Resolved]
  - Diverticular perforation [Unknown]
  - Product use in unapproved indication [Unknown]

NARRATIVE: CASE EVENT DATE: 201612
